FAERS Safety Report 25464724 (Version 1)
Quarter: 2025Q2

REPORT INFORMATION
  Report Type: Spontaneous
  Country: US (occurrence: US)
  Receive Date: 20250622
  Receipt Date: 20250622
  Transmission Date: 20250717
  Serious: No
  Sender: DR REDDYS
  Company Number: US-DRL-USA-USA/2025/06/008211

PATIENT
  Age: 44 Year
  Sex: Female

DRUGS (3)
  1. IMATINIB [Suspect]
     Active Substance: IMATINIB
     Indication: Chronic myeloid leukaemia
     Dosage: 400 MG TWO TIMES DAILY
  2. IMATINIB [Suspect]
     Active Substance: IMATINIB
     Dosage: IMATINIB DOSE WAS REDUCED TO 400MG DAILY
     Dates: end: 201812
  3. IMATINIB [Suspect]
     Active Substance: IMATINIB
     Dosage: IMATINIB 400MG DAILY

REACTIONS (3)
  - Oedema [Unknown]
  - Diarrhoea [Unknown]
  - Treatment noncompliance [Unknown]
